FAERS Safety Report 5108178-1 (Version None)
Quarter: 2006Q3

REPORT INFORMATION
  Report Type: 
  Country: None (occurrence: None)
  Receive Date: 20060919
  Receipt Date: 20060809
  Transmission Date: 20061208
  Serious: Yes (Other)
  Sender: FDA-Public Use
  Company Number: GB-ROCHE-459366

PATIENT
  Age: 26 Year
  Sex: Female

DRUGS (3)
  1. XENICAL [Suspect]
     Route: 048
     Dates: start: 20060701
  2. RISPERIDONE [Concomitant]
     Route: 048
  3. ORAL CONTRACEPTIVE PILL [Concomitant]

REACTIONS (2)
  - DRUG DOSE OMISSION [None]
  - PSYCHOTIC DISORDER [None]
